FAERS Safety Report 21952999 (Version 3)
Quarter: 2023Q2

REPORT INFORMATION
  Report Type: Spontaneous
  Country: US (occurrence: US)
  Receive Date: 20230204
  Receipt Date: 20230405
  Transmission Date: 20230722
  Serious: No
  Sender: FDA-Public Use
  Company Number: US-002147023-NVSC2023US020113

PATIENT
  Sex: Male

DRUGS (2)
  1. VOTRIENT [Suspect]
     Active Substance: PAZOPANIB HYDROCHLORIDE
     Indication: Product used for unknown indication
     Dosage: 600 MG, QD
     Route: 048
     Dates: start: 20220913
  2. VOTRIENT [Suspect]
     Active Substance: PAZOPANIB HYDROCHLORIDE
     Dosage: 400 MG, QD
     Route: 048
     Dates: start: 202303

REACTIONS (7)
  - Pruritus [Not Recovered/Not Resolved]
  - Dysuria [Unknown]
  - Chromaturia [Unknown]
  - Blood urine present [Unknown]
  - Abdominal pain upper [Unknown]
  - Haematuria [Unknown]
  - Decreased appetite [Unknown]
